FAERS Safety Report 20236866 (Version 2)
Quarter: 2022Q1

REPORT INFORMATION
  Report Type: Spontaneous
  Country: JP (occurrence: JP)
  Receive Date: 20211228
  Receipt Date: 20220128
  Transmission Date: 20220424
  Serious: Yes (Other)
  Sender: FDA-Public Use
  Company Number: JP-TAKEDA-2021TJP135171

PATIENT
  Age: 49 Year
  Sex: Female

DRUGS (1)
  1. ZEJULA [Suspect]
     Active Substance: NIRAPARIB
     Indication: Ovarian cancer recurrent
     Dosage: UNK
     Route: 048
     Dates: start: 20211027, end: 20211215

REACTIONS (3)
  - Ovarian cancer recurrent [Not Recovered/Not Resolved]
  - Disease progression [Not Recovered/Not Resolved]
  - Anaemia [Recovered/Resolved]
